FAERS Safety Report 8760861 (Version 2)
Quarter: 2012Q4

REPORT INFORMATION
  Report Type: 
  Country: US (occurrence: US)
  Receive Date: 20120830
  Receipt Date: 20120920
  Transmission Date: 20130627
  Serious: Yes (Hospitalization, Other)
  Sender: FDA-Public Use
  Company Number: US-GENZYME-MOZO-1000713

PATIENT
  Age: 29 Year
  Sex: Male
  Weight: 70.6 kg

DRUGS (9)
  1. MOZOBIL [Suspect]
     Indication: ACUTE MYELOID LEUKAEMIA RECURRENT
     Dosage: 51000 mcg, qd, Days 4-8
     Route: 042
     Dates: start: 20120523, end: 20120528
  2. GRANULOCYTE COLONY STIMULATING FACTOR [Concomitant]
     Indication: ACUTE MYELOID LEUKAEMIA RECURRENT
     Dosage: 600 mcg, qd, Days 1-8
     Route: 058
     Dates: start: 20120521, end: 20120528
  3. MITOXANTRONE [Concomitant]
     Indication: ACUTE MYELOID LEUKAEMIA RECURRENT
     Dosage: 14.3 mg, qd, Days 4-8
     Route: 042
     Dates: start: 20120524, end: 20120528
  4. ETOPOSIDE [Concomitant]
     Indication: ACUTE MYELOID LEUKAEMIA RECURRENT
     Dosage: 180 mg, qd, Days 4-8
     Route: 042
     Dates: start: 20120524, end: 20120528
  5. CYTARABINE [Concomitant]
     Indication: ACUTE MYELOID LEUKAEMIA RECURRENT
     Dosage: 1.8 g, qd, days 4-8
     Route: 042
     Dates: start: 20120524, end: 20120528
  6. MAALOX [Concomitant]
     Indication: DYSPEPSIA
     Dosage: 15 ml, every 4 hr prn
     Route: 048
  7. ONDANSETRON [Concomitant]
     Indication: PRODUCT USED FOR UNKNOWN INDICATION
     Dosage: 8 mg, q6 prn
     Route: 065
  8. FAMOTIDINE [Concomitant]
     Indication: PRODUCT USED FOR UNKNOWN INDICATION
     Dosage: 20 mg, bid
     Route: 042
  9. TACROLIMUS [Concomitant]
     Indication: PRODUCT USED FOR UNKNOWN INDICATION
     Dosage: 1 mg, qd
     Route: 048
     Dates: start: 20120601, end: 20120701

REACTIONS (12)
  - Pain [Not Recovered/Not Resolved]
  - Diarrhoea [Recovered/Resolved]
  - Pneumonia fungal [Not Recovered/Not Resolved]
  - Febrile neutropenia [Recovered/Resolved]
  - Fluid overload [Recovered/Resolved]
  - Oedema peripheral [Recovered/Resolved]
  - Mouth haemorrhage [Recovered/Resolved]
  - Oropharyngeal plaque [Not Recovered/Not Resolved]
  - Mucosal inflammation [Not Recovered/Not Resolved]
  - Cough [Recovered/Resolved]
  - Neck pain [Recovered/Resolved]
  - Back pain [Recovered/Resolved]
